FAERS Safety Report 4453356-8 (Version None)
Quarter: 2004Q3

REPORT INFORMATION
  Report Type: 
  Country: None (occurrence: None)
  Receive Date: 20040901
  Receipt Date: 20040607
  Transmission Date: 20050211
  Serious: Yes (Other)
  Sender: FDA-Public Use
  Company Number: US079253

PATIENT
  Age: 68 Year
  Sex: Male

DRUGS (1)
  1. ENBREL [Suspect]
     Indication: PSORIATIC ARTHROPATHY
     Dosage: 2 IN 1 WEEKS, SC
     Route: 058
     Dates: start: 20010701

REACTIONS (2)
  - PNEUMONIA [None]
  - PROSTATE CANCER [None]
